FAERS Safety Report 7977548-6 (Version None)
Quarter: 2011Q4

REPORT INFORMATION
  Report Type: 
  Country: None (occurrence: None)
  Receive Date: 20111214
  Receipt Date: 20111121
  Transmission Date: 20120403
  Serious: No
  Sender: FDA-Public Use
  Company Number: US-AMGEN-USASP2011012499

PATIENT
  Sex: Female

DRUGS (3)
  1. ENBREL [Suspect]
     Dosage: 50 MG, QWK
  2. METHOTREXATE [Concomitant]
     Dosage: UNK
     Dates: end: 20111017
  3. ENBREL [Suspect]
     Indication: PSORIATIC ARTHROPATHY
     Dosage: 50 MG, QWK
     Dates: start: 20101101

REACTIONS (5)
  - PAIN IN EXTREMITY [None]
  - FATIGUE [None]
  - INJECTION SITE PAIN [None]
  - SINUSITIS [None]
  - CYSTITIS [None]
